FAERS Safety Report 13467559 (Version 3)
Quarter: 2017Q2

REPORT INFORMATION
  Report Type: Spontaneous
  Country: US (occurrence: US)
  Receive Date: 20170421
  Receipt Date: 20170526
  Transmission Date: 20170830
  Serious: Yes (Other)
  Sender: FDA-Public Use
  Company Number: US-PFIZER INC-2017172287

PATIENT
  Age: 59 Year
  Sex: Female
  Weight: 58 kg

DRUGS (3)
  1. PREMARIN [Suspect]
     Active Substance: ESTROGENS, CONJUGATED
     Indication: HORMONE REPLACEMENT THERAPY
     Dosage: 0.625 MG, 1X/DAY
  2. PREMARIN [Suspect]
     Active Substance: ESTROGENS, CONJUGATED
     Dosage: 0.3 MG, 1X/DAY
     Route: 048
  3. PREMARIN [Suspect]
     Active Substance: ESTROGENS, CONJUGATED
     Dosage: 0.3 MG, ALTERNATE DAY
     Dates: start: 2017

REACTIONS (15)
  - Vulvovaginal dryness [Unknown]
  - Anxiety [Unknown]
  - Gait disturbance [Unknown]
  - Balance disorder [Unknown]
  - Fatigue [Unknown]
  - Tremor [Unknown]
  - Cerebrovascular accident [Unknown]
  - Malaise [Unknown]
  - Hyperhidrosis [Unknown]
  - Nervousness [Unknown]
  - Confusional state [Unknown]
  - Disturbance in attention [Unknown]
  - Fungal infection [Unknown]
  - Feeling abnormal [Unknown]
  - Dizziness [Unknown]
